FAERS Safety Report 6893520-1 (Version None)
Quarter: 2010Q3

REPORT INFORMATION
  Report Type: 
  Country: None (occurrence: None)
  Receive Date: 20100731
  Receipt Date: 20090930
  Transmission Date: 20110219
  Serious: No
  Sender: FDA-Public Use
  Company Number: US-PFIZER INC-2009256974

PATIENT
  Sex: Female
  Weight: 83.9 kg

DRUGS (6)
  1. NEURONTIN [Suspect]
     Indication: NEUROPATHY PERIPHERAL
     Dosage: UNK
     Route: 048
     Dates: start: 20090301
  2. FOSAMAX [Concomitant]
     Indication: ARTHRITIS
     Dosage: FREQUENCY: ONCE EVERY WEEK,
     Route: 048
  3. GLUCOSAMINE [Concomitant]
     Indication: OSTEOARTHRITIS
     Dosage: UNK
     Route: 048
  4. DYAZIDE [Concomitant]
     Dosage: UNK
  5. CENTRUM SILVER [Concomitant]
     Dosage: DAILY
     Route: 048
  6. CALCIUM [Concomitant]
     Dosage: DAILY
     Route: 048

REACTIONS (2)
  - DRUG INEFFECTIVE [None]
  - INSOMNIA [None]
